FAERS Safety Report 9877302 (Version 1)
Quarter: 2014Q1

REPORT INFORMATION
  Report Type: Spontaneous
  Country: US (occurrence: US)
  Receive Date: 20140206
  Receipt Date: 20140206
  Transmission Date: 20141002
  Serious: No
  Sender: FDA-Public Use
  Company Number: US-009507513-1402USA002378

PATIENT
  Sex: Female

DRUGS (1)
  1. AZASITE [Suspect]
     Indication: EYE INFECTION
     Dosage: 2 GTT, QD
     Route: 047
     Dates: start: 2012

REACTIONS (3)
  - Dacryostenosis acquired [Unknown]
  - Meibomian gland dysfunction [Unknown]
  - Drug dose omission [Unknown]
